FAERS Safety Report 7543010-8 (Version None)
Quarter: 2011Q2

REPORT INFORMATION
  Report Type: 
  Country: None (occurrence: None)
  Receive Date: 20110613
  Receipt Date: 20110609
  Transmission Date: 20111010
  Serious: Yes (Life-Threatening)
  Sender: FDA-Public Use
  Company Number: FR-ABBOTT-11P-056-0731263-00

PATIENT
  Sex: Female

DRUGS (5)
  1. SUFENTA PRESERVATIVE FREE [Suspect]
     Indication: ANAESTHESIA
     Dosage: ONCE ADMINISTRATION
     Dates: start: 20110215, end: 20110215
  2. THIOPENTAL SODIUM [Suspect]
     Indication: ANAESTHESIA
     Dosage: ONCE ADMINISTRATION
     Dates: start: 20110215, end: 20110215
  3. SEVOFLURANE [Suspect]
     Indication: ANAESTHESIA
     Dosage: ONCE ADMINISTRATION
     Route: 042
     Dates: start: 20110215, end: 20110215
  4. ACETAMINOPHEN [Concomitant]
     Indication: PRODUCT USED FOR UNKNOWN INDICATION
     Dosage: UNKNOWN
     Route: 042
  5. CELOCURINE [Suspect]
     Indication: ANAESTHESIA
     Dosage: ONCE ADMINISTRATION
     Dates: start: 20110215, end: 20110215

REACTIONS (4)
  - FACE OEDEMA [None]
  - BRONCHOSPASM [None]
  - ERYTHEMA [None]
  - HYPOTENSION [None]
